FAERS Safety Report 5655696-3 (Version None)
Quarter: 2008Q1

REPORT INFORMATION
  Report Type: 
  Country: None (occurrence: None)
  Receive Date: 20080212
  Receipt Date: 20070404
  Transmission Date: 20080703
  Serious: Yes (Death, Life-Threatening)
  Sender: FDA-Public Use
  Company Number: MC200700280

PATIENT
  Age: 74 Year
  Sex: Male

DRUGS (2)
  1. ANGIOMAX [Suspect]
     Indication: PERCUTANEOUS CORONARY INTERVENTION
     Dosage: 2.5 ML, BOLUS, IV BOLUS
     Route: 040
     Dates: start: 20070302, end: 20070302
  2. ANGIOMAX [Suspect]
     Dosage: 25 ML, HR, INTRAVENOUS
     Route: 042
     Dates: start: 20070302, end: 20070302

REACTIONS (3)
  - CHEST PAIN [None]
  - STENT OCCLUSION [None]
  - VENTRICULAR FIBRILLATION [None]
